FAERS Safety Report 9432269 (Version 1)
Quarter: 2013Q3

REPORT INFORMATION
  Report Type: Spontaneous
  Country: US (occurrence: US)
  Receive Date: 20130731
  Receipt Date: 20130731
  Transmission Date: 20140515
  Serious: Yes (Hospitalization, Other)
  Sender: FDA-Public Use
  Company Number: CHPA2013US011691

PATIENT
  Age: 78 Year
  Sex: Male

DRUGS (1)
  1. PERDIEM OVERNIGHT RELIEF PILLS [Suspect]
     Indication: LAXATIVE SUPPORTIVE CARE
     Dosage: 3 DF, QHS
     Route: 048

REACTIONS (4)
  - Functional gastrointestinal disorder [Recovered/Resolved]
  - Drug abuse [Unknown]
  - Incorrect drug administration duration [Unknown]
  - Overdose [Unknown]
